FAERS Safety Report 5251313-5 (Version None)
Quarter: 2007Q1

REPORT INFORMATION
  Report Type: 
  Country: None (occurrence: None)
  Receive Date: 20061201
  Receipt Date: 20060801
  Transmission Date: 20070707
  Serious: No
  Sender: FDA-Public Use
  Company Number: 2006PV018611

PATIENT
  Age: 54 Year
  Sex: Female
  Weight: 67.1324 kg

DRUGS (4)
  1. BYETTA [Suspect]
     Indication: DIABETES MELLITUS NON-INSULIN-DEPENDENT
     Dosage: SEE IMAGE
     Route: 058
     Dates: start: 20060629, end: 20060728
  2. BYETTA [Suspect]
     Indication: DIABETES MELLITUS NON-INSULIN-DEPENDENT
     Dosage: SEE IMAGE
     Route: 058
     Dates: start: 20060729, end: 20060730
  3. BYETTA [Suspect]
     Indication: DIABETES MELLITUS NON-INSULIN-DEPENDENT
     Dosage: SEE IMAGE
     Route: 058
     Dates: start: 20060731
  4. GLUCOPHAGE [Concomitant]

REACTIONS (4)
  - ASTHENIA [None]
  - BLOOD GLUCOSE DECREASED [None]
  - DISSOCIATION [None]
  - DRY MOUTH [None]
